FAERS Safety Report 5547143-7 (Version None)
Quarter: 2007Q4

REPORT INFORMATION
  Report Type: 
  Country: None (occurrence: None)
  Receive Date: 20071206
  Receipt Date: 20071119
  Transmission Date: 20080405
  Serious: Yes (Other)
  Sender: FDA-Public Use
  Company Number: 2007JP004941

PATIENT
  Age: 85 Year
  Sex: Male

DRUGS (8)
  1. VESICARE [Suspect]
     Indication: HYPERTONIC BLADDER
     Dosage: 5 MG, UID/QD, ORAL
     Route: 048
     Dates: start: 20070928, end: 20071026
  2. TAMSULOSIN HCL [Suspect]
     Indication: BENIGN PROSTATIC HYPERPLASIA
     Dosage: 0.2 MG, UID/QD, ORAL
     Route: 048
     Dates: start: 20070601
  3. CARVEDILOL [Concomitant]
  4. LASIX [Concomitant]
  5. ALDACTONE-A TABLET [Concomitant]
  6. ENALAPRIL MALEATE [Concomitant]
  7. ANCARON (AMIODARONE HYDROCHLORIDE) TABLET [Concomitant]
  8. LOCOL TABLET [Concomitant]

REACTIONS (3)
  - BLOOD CREATININE INCREASED [None]
  - BLOOD UREA INCREASED [None]
  - BLOOD URIC ACID INCREASED [None]
